FAERS Safety Report 22881888 (Version 10)
Quarter: 2024Q2

REPORT INFORMATION
  Report Type: Spontaneous
  Country: GB (occurrence: GB)
  Receive Date: 20230830
  Receipt Date: 20240514
  Transmission Date: 20240716
  Serious: Yes (Hospitalization, Other)
  Sender: FDA-Public Use
  Company Number: GB-MYLANLABS-2023M1090351

PATIENT
  Age: 45 Year
  Sex: Female

DRUGS (2)
  1. CLOZARIL [Suspect]
     Active Substance: CLOZAPINE
     Indication: Schizophrenia
     Dosage: UNK
     Route: 048
     Dates: start: 20191209, end: 20230823
  2. CLOZARIL [Suspect]
     Active Substance: CLOZAPINE
     Dosage: UNK
     Route: 048
     Dates: start: 20240103, end: 20240417

REACTIONS (7)
  - General physical health deterioration [Unknown]
  - Schizophrenia [Unknown]
  - Mental disorder [Unknown]
  - Urinary tract infection [Unknown]
  - Eosinophilia [Not Recovered/Not Resolved]
  - Rhabdomyolysis [Unknown]
  - Leukocytosis [Unknown]

NARRATIVE: CASE EVENT DATE: 20230801
